FAERS Safety Report 5146630-3 (Version None)
Quarter: 2006Q4

REPORT INFORMATION
  Report Type: 
  Country: None (occurrence: None)
  Receive Date: 20061107
  Receipt Date: 20061107
  Transmission Date: 20070319
  Serious: Yes (Other)
  Sender: FDA-Public Use
  Company Number: None

PATIENT
  Age: 58 Year
  Sex: Male
  Weight: 81.6475 kg

DRUGS (3)
  1. TYSABRI [Suspect]
     Indication: MULTIPLE SCLEROSIS
     Dosage: 300 MG IV EVERY MONTH
     Route: 042
     Dates: start: 20061006
  2. TYSABRI [Suspect]
     Indication: MULTIPLE SCLEROSIS
     Dosage: 300 MG IV EVERY MONTH
     Route: 042
     Dates: start: 20061102
  3. SODIUM CHLORIDE [Concomitant]

REACTIONS (6)
  - BALANCE DISORDER [None]
  - CHILLS [None]
  - FAECAL INCONTINENCE [None]
  - FLUSHING [None]
  - GAIT DISTURBANCE [None]
  - INFUSION RELATED REACTION [None]
